FAERS Safety Report 9405803 (Version 3)
Quarter: 2014Q2

REPORT INFORMATION
  Report Type: Spontaneous
  Country: US (occurrence: US)
  Receive Date: 20130717
  Receipt Date: 20140407
  Transmission Date: 20141212
  Serious: Yes (Hospitalization)
  Sender: FDA-Public Use
  Company Number: US-GLAXOSMITHKLINE-A1030256A

PATIENT
  Age: 40 Year
  Sex: Male

DRUGS (1)
  1. AVANDIA [Suspect]
     Indication: TYPE 2 DIABETES MELLITUS
     Dosage: 8MG PER DAY
     Route: 048
     Dates: start: 200002, end: 200401

REACTIONS (6)
  - Coronary artery disease [Unknown]
  - Myocardial infarction [Unknown]
  - Angina pectoris [Unknown]
  - Myocardial ischaemia [Unknown]
  - Pulmonary oedema [Unknown]
  - Pleural effusion [Unknown]
